FAERS Safety Report 7351319-6 (Version None)
Quarter: 2011Q1

REPORT INFORMATION
  Report Type: 
  Country: None (occurrence: None)
  Receive Date: 20110314
  Receipt Date: 20110228
  Transmission Date: 20110831
  Serious: Yes (Other)
  Sender: FDA-Public Use
  Company Number: PHHY2010BR63492

PATIENT
  Age: 62 Year
  Sex: Male

DRUGS (1)
  1. DIOVAN TRIPLE [Suspect]
     Dosage: 160/12.5/5MG
     Route: 048

REACTIONS (1)
  - RENAL CANCER [None]
